FAERS Safety Report 25371712 (Version 1)
Quarter: 2025Q2

REPORT INFORMATION
  Report Type: Spontaneous
  Country: US (occurrence: US)
  Receive Date: 20250529
  Receipt Date: 20250529
  Transmission Date: 20250717
  Serious: No
  Sender: UCB
  Company Number: US-UCBSA-2025006073

PATIENT
  Sex: Male
  Weight: 103 kg

DRUGS (1)
  1. ZILBRYSQ [Suspect]
     Active Substance: ZILUCOPLAN
     Indication: Myasthenia gravis
     Dosage: 32.4 MILLIGRAM, ONCE DAILY (QD)
     Route: 065
     Dates: start: 20241217

REACTIONS (1)
  - Drug ineffective [Unknown]
